FAERS Safety Report 8844648 (Version 3)
Quarter: 2012Q4

REPORT INFORMATION
  Report Type: 
  Country: US (occurrence: US)
  Receive Date: 20121017
  Receipt Date: 20121221
  Transmission Date: 20130627
  Serious: Yes (Other)
  Sender: FDA-Public Use
  Company Number: US-PFIZER INC-2012257289

PATIENT
  Age: 74 Year
  Sex: Female
  Weight: 78.46 kg

DRUGS (4)
  1. CELEBREX [Suspect]
     Indication: ARTHRITIS
     Dosage: 200 mg, 1x/day
     Route: 048
     Dates: end: 201207
  2. SYNTHROID [Concomitant]
     Dosage: UNK
  3. TOPROL XL [Concomitant]
     Dosage: UNK
  4. TRAZODONE [Concomitant]
     Dosage: UNK

REACTIONS (1)
  - Coronary artery occlusion [Unknown]
